FAERS Safety Report 9603090 (Version 1)
Quarter: 2013Q4

REPORT INFORMATION
  Report Type: Spontaneous
  Country: US (occurrence: US)
  Receive Date: 20131007
  Receipt Date: 20131007
  Transmission Date: 20140711
  Serious: Yes (Hospitalization)
  Sender: FDA-Public Use
  Company Number: US-GLAXOSMITHKLINE-B0916935A

PATIENT
  Age: 53 Year
  Sex: Female

DRUGS (6)
  1. LETAIRIS [Suspect]
     Indication: PULMONARY HYPERTENSION
     Route: 048
     Dates: start: 20130308
  2. LETAIRIS [Suspect]
     Indication: CONNECTIVE TISSUE DISORDER
  3. VELETRI [Suspect]
  4. RITUXAN [Concomitant]
  5. SILDENAFIL [Concomitant]
  6. LASIX [Concomitant]

REACTIONS (3)
  - Scleroderma [Unknown]
  - Pain in extremity [Unknown]
  - Pain [Unknown]
